FAERS Safety Report 10024982 (Version 1)
Quarter: 2014Q1

REPORT INFORMATION
  Report Type: Spontaneous
  Country: US (occurrence: US)
  Receive Date: 20140320
  Receipt Date: 20140320
  Transmission Date: 20141002
  Serious: No
  Sender: FDA-Public Use
  Company Number: US-BAYER-2014-039129

PATIENT
  Age: 35 Year
  Sex: Female

DRUGS (2)
  1. GADAVIST [Suspect]
     Indication: NUCLEAR MAGNETIC RESONANCE IMAGING BRAIN
     Dosage: 12 ML, ONCE
     Dates: start: 20140309, end: 20140309
  2. GADAVIST [Suspect]
     Indication: MASS

REACTIONS (3)
  - Injection site erythema [None]
  - Injection site pruritus [None]
  - Pruritus generalised [None]
